FAERS Safety Report 18639954 (Version 1)
Quarter: 2020Q4

REPORT INFORMATION
  Report Type: Spontaneous
  Country: US (occurrence: US)
  Receive Date: 20201220
  Receipt Date: 20201220
  Transmission Date: 20210114
  Serious: No
  Sender: FDA-Public Use
  Company Number: US-PACIRA-202000079

PATIENT

DRUGS (3)
  1. BUPIVACAINE. [Suspect]
     Active Substance: BUPIVACAINE
     Indication: NERVE BLOCK
     Dosage: ADMIXTURE OF 60 ML OF EXPAREL + 150 MG OF BUPIVACAINE + 100 MG OF LIDOCAINE
     Route: 065
     Dates: start: 20200326, end: 20200326
  2. EXPAREL [Suspect]
     Active Substance: BUPIVACAINE
     Indication: NERVE BLOCK
     Dosage: ADMIXTURE OF 60 ML OF EXPAREL + 150 MG OF BUPIVACAINE + 100 MG OF LIDOCAINE
     Route: 065
     Dates: start: 20200326, end: 20200326
  3. LIDOCAINE. [Suspect]
     Active Substance: LIDOCAINE
     Indication: NERVE BLOCK
     Dosage: ADMIXTURE OF 60 ML OF EXPAREL + 150 MG OF BUPIVACAINE + 100 MG OF LIDOCAINE
     Route: 065
     Dates: start: 20200326, end: 20200326

REACTIONS (2)
  - Labelled drug-drug interaction medication error [Unknown]
  - Off label use [Unknown]

NARRATIVE: CASE EVENT DATE: 20200326
